FAERS Safety Report 22225719 (Version 3)
Quarter: 2024Q1

REPORT INFORMATION
  Report Type: Spontaneous
  Country: JP (occurrence: JP)
  Receive Date: 20230418
  Receipt Date: 20240319
  Transmission Date: 20240409
  Serious: Yes (Death, Other)
  Sender: FDA-Public Use
  Company Number: JP-JAZZ PHARMACEUTICALS-2023-JP-008769

PATIENT
  Age: 54 Year
  Sex: Female
  Weight: 57.4 kg

DRUGS (2)
  1. DEFITELIO [Suspect]
     Active Substance: DEFIBROTIDE SODIUM
     Indication: Venoocclusive liver disease
     Dosage: 25 MILLIGRAM/KILOGRAM, QD
     Route: 042
     Dates: start: 20230315, end: 20230324
  2. DEFITELIO [Suspect]
     Active Substance: DEFIBROTIDE SODIUM
     Indication: Acute myeloid leukaemia

REACTIONS (1)
  - Venoocclusive liver disease [Fatal]

NARRATIVE: CASE EVENT DATE: 20230301
